FAERS Safety Report 17774202 (Version 1)
Quarter: 2020Q2

REPORT INFORMATION
  Report Type: Spontaneous
  Country: US (occurrence: US)
  Receive Date: 20200513
  Receipt Date: 20200513
  Transmission Date: 20200714
  Serious: Yes (Other)
  Sender: FDA-Public Use
  Company Number: US-ROCHE-2588546

PATIENT
  Sex: Female

DRUGS (2)
  1. VALSARTAN. [Concomitant]
     Active Substance: VALSARTAN
     Indication: HYPERTENSION
     Route: 048
  2. GAZYVA [Suspect]
     Active Substance: OBINUTUZUMAB
     Indication: CHRONIC LYMPHOCYTIC LEUKAEMIA
     Dosage: NO
     Route: 042
     Dates: start: 202001, end: 202001

REACTIONS (3)
  - Bone marrow failure [Not Recovered/Not Resolved]
  - Transfusion [Not Recovered/Not Resolved]
  - Hypoplastic anaemia [Not Recovered/Not Resolved]
